FAERS Safety Report 6341697-9 (Version None)
Quarter: 2009Q3

REPORT INFORMATION
  Report Type: 
  Country: None (occurrence: None)
  Receive Date: 20090902
  Receipt Date: 20090902
  Transmission Date: 20100115
  Serious: No
  Sender: FDA-Public Use
  Company Number: None

PATIENT
  Age: 73 Year
  Sex: Male
  Weight: 73.9363 kg

DRUGS (1)
  1. TRILIPIX [Suspect]
     Indication: BLOOD TRIGLYCERIDES ABNORMAL
     Dosage: DELAYED RELEASE CAPSULE ONCE PER DAY PO
     Route: 048
     Dates: start: 20090101, end: 20090901

REACTIONS (1)
  - MUSCLE TIGHTNESS [None]
